FAERS Safety Report 5005049-6 (Version None)
Quarter: 2006Q2

REPORT INFORMATION
  Report Type: 
  Country: None (occurrence: None)
  Receive Date: 20060516
  Receipt Date: 20060516
  Transmission Date: 20061013
  Serious: Yes (Hospitalization)
  Sender: FDA-Public Use
  Company Number: None

PATIENT
  Age: 8 Year
  Sex: Male
  Weight: 22.6799 kg

DRUGS (1)
  1. ABILIFY [Suspect]
     Indication: MOOD ALTERED
     Dosage: 5MG  ONCE A DAY  PO
     Route: 048
     Dates: start: 20060512, end: 20060514

REACTIONS (14)
  - COLD SWEAT [None]
  - DEPRESSED LEVEL OF CONSCIOUSNESS [None]
  - DYSARTHRIA [None]
  - EYE ROLLING [None]
  - FACIAL PALSY [None]
  - FEELING HOT [None]
  - MUSCLE RIGIDITY [None]
  - MUSCLE TWITCHING [None]
  - MUSCULOSKELETAL STIFFNESS [None]
  - PAIN [None]
  - PALLOR [None]
  - POLLAKIURIA [None]
  - SOMNOLENCE [None]
  - TREMOR [None]
